FAERS Safety Report 8023202-4 (Version None)
Quarter: 2012Q1

REPORT INFORMATION
  Report Type: 
  Country: None (occurrence: None)
  Receive Date: 20120104
  Receipt Date: 20111227
  Transmission Date: 20120608
  Serious: Yes (Other)
  Sender: FDA-Public Use
  Company Number: US-ELI_LILLY_AND_COMPANY-US201112000510

PATIENT
  Sex: Male
  Weight: 53.6 kg

DRUGS (3)
  1. HUMALOG [Suspect]
     Dosage: UNK, PRN
     Dates: start: 20100701
  2. LANTUS [Concomitant]
     Dosage: UNK
  3. HUMALOG [Suspect]
     Indication: TYPE 1 DIABETES MELLITUS
     Dosage: UNK, PRN
     Dates: start: 20100701

REACTIONS (3)
  - ABDOMINAL PAIN UPPER [None]
  - HYPERGLYCAEMIA [None]
  - BLOOD KETONE BODY [None]
